FAERS Safety Report 5733705-0 (Version None)
Quarter: 2008Q2

REPORT INFORMATION
  Report Type: 
  Country: None (occurrence: None)
  Receive Date: 20080509
  Receipt Date: 20080429
  Transmission Date: 20081010
  Serious: Yes (Congenital Anomaly)
  Sender: FDA-Public Use
  Company Number: CH-PFIZER INC-2008023268

PATIENT

DRUGS (5)
  1. ALDACTONE [Suspect]
     Indication: ESSENTIAL HYPERTENSION
     Dosage: DAILY DOSE:25MG
     Route: 064
  2. ATENOLOL [Suspect]
     Indication: ESSENTIAL HYPERTENSION
     Dosage: DAILY DOSE:50MG
     Route: 064
  3. LISINOPRIL [Suspect]
     Indication: ESSENTIAL HYPERTENSION
     Dosage: DAILY DOSE:5MG
     Route: 064
  4. COSAAR PLUS [Suspect]
     Indication: ESSENTIAL HYPERTENSION
     Dosage: TEXT:25MG/100MG DAILY
     Route: 064
  5. ASPIRIN [Suspect]
     Indication: ESSENTIAL HYPERTENSION
     Dosage: DAILY DOSE:100MG
     Route: 064

REACTIONS (2)
  - DRUG EXPOSURE DURING PREGNANCY [None]
  - RENAL FAILURE [None]
